FAERS Safety Report 4720376-5 (Version None)
Quarter: 2005Q3

REPORT INFORMATION
  Report Type: 
  Country: None (occurrence: None)
  Receive Date: 20050719
  Receipt Date: 20050706
  Transmission Date: 20060218
  Serious: Yes (Other)
  Sender: FDA-Public Use
  Company Number: 2005079827

PATIENT
  Age: 65 Year
  Sex: Female

DRUGS (6)
  1. CELEBREX [Suspect]
     Indication: ARTHRITIS
     Dosage: 400 MG (400 MG, 1 IN 1 D), ORAL
     Route: 048
     Dates: start: 19990101
  2. GABAPENTIN [Suspect]
     Indication: NEUROPATHY PERIPHERAL
     Dosage: 900 MG (300 MG, 3 IN 1 D)
     Dates: start: 20050101
  3. ELAVIL [Suspect]
     Indication: INCONTINENCE
  4. ALL OTHER THERAPEUTIC PRODUCTS  (ALL OTHER THERAPEUTIC PRODUCTS) [Suspect]
     Indication: INCONTINENCE
  5. VALSARTAN [Concomitant]
  6. ARTHROTEC [Suspect]

REACTIONS (16)
  - BLADDER PAIN [None]
  - BONE DISORDER [None]
  - DRUG INEFFECTIVE [None]
  - HAEMANGIOMA [None]
  - HYPERTONIC BLADDER [None]
  - INTERVERTEBRAL DISC PROTRUSION [None]
  - NEUROLOGICAL SYMPTOM [None]
  - NEUROPATHY PERIPHERAL [None]
  - OSTEOARTHRITIS [None]
  - PAIN [None]
  - SCOLIOSIS [None]
  - SOMNOLENCE [None]
  - TENSION [None]
  - TOOTHACHE [None]
  - TREATMENT NONCOMPLIANCE [None]
  - URINARY INCONTINENCE [None]
